FAERS Safety Report 10041669 (Version 2)
Quarter: 2018Q4

REPORT INFORMATION
  Report Type: Spontaneous
  Country: US (occurrence: US)
  Receive Date: 20140327
  Receipt Date: 20181129
  Transmission Date: 20190204
  Serious: Yes (Other)
  Sender: FDA-Public Use
  Company Number: PHHY2014US032321

PATIENT
  Age: 73 Year
  Sex: Female

DRUGS (3)
  1. LEVOTHYROXINE SODIUM. [Concomitant]
     Active Substance: LEVOTHYROXINE SODIUM
     Indication: HYPOTHYROIDISM
     Dosage: 50 UG, QD
     Route: 065
  2. HYDRALAZINE [Suspect]
     Active Substance: HYDRALAZINE HYDROCHLORIDE
     Indication: HYPERTENSION
     Dosage: 50 MG, TID
     Route: 065
  3. CARVEDILOL. [Concomitant]
     Active Substance: CARVEDILOL
     Indication: HYPERTENSION
     Dosage: 6.25 MG, QID
     Route: 065

REACTIONS (9)
  - Glomerulonephritis [Unknown]
  - Anti-neutrophil cytoplasmic antibody positive vasculitis [Unknown]
  - Fatigue [Unknown]
  - Arthralgia [Unknown]
  - Chest pain [Unknown]
  - Pyrexia [Unknown]
  - Decreased appetite [Unknown]
  - Dyspnoea exertional [Unknown]
  - Acute kidney injury [Unknown]
